FAERS Safety Report 9672349 (Version 1)
Quarter: 2013Q4

REPORT INFORMATION
  Report Type: Spontaneous
  Country: FI (occurrence: FI)
  Receive Date: 20131106
  Receipt Date: 20131106
  Transmission Date: 20140711
  Serious: Yes (Death)
  Sender: FDA-Public Use
  Company Number: FI-TEVA-440568ISR

PATIENT
  Age: 85 Year
  Sex: Female

DRUGS (28)
  1. PRAVASTATIN RATIOPHARM 40 MG [Suspect]
     Dosage: 40 MILLIGRAM DAILY;
     Route: 048
     Dates: start: 20110728, end: 20130930
  2. IPRAMOL [Suspect]
     Dosage: 1 DOSAGE FORM = ALBUTEROL SULFATE 2.5 MG + IPRATROPIUM BROMIDE 0.5 MG;  4-6 TIMES PER DAY
     Route: 055
  3. NASOFAN [Suspect]
     Dosage: 100 MICROGRAM DAILY;
     Route: 045
     Dates: start: 20101015
  4. NORSPAN 10MICROG/H [Suspect]
     Dosage: 240 MICROGRAM DAILY;
     Route: 061
     Dates: start: 20130604
  5. SOMAC 20MG [Suspect]
     Dosage: 20 MILLIGRAM DAILY; DURING CORTISONE COURSE
     Route: 048
     Dates: start: 20130506
  6. LITALGIN [Suspect]
     Dosage: 2 TABLET DAILY; 1-2 TIMES A DAY
     Route: 048
     Dates: start: 20110816
  7. VI-SIBLIN [Suspect]
     Route: 048
     Dates: start: 20110905
  8. DIFORMIN RETARD 500MG [Suspect]
     Dosage: 1000 MILLIGRAM DAILY;
     Route: 048
     Dates: start: 20130528
  9. PRADAXA 110MG [Suspect]
     Dosage: 220 MILLIGRAM DAILY;
     Route: 048
     Dates: start: 20130704
  10. FURESIS 20 MG [Suspect]
     Dosage: 80 MILLIGRAM DAILY;
     Route: 048
     Dates: start: 20070724
  11. TREXAN 10MG [Suspect]
     Dosage: ACCORDING TO NARRATIVE TREXAN WAS ON PAUSE FOR UNSPECIFIED PERIOD
     Route: 048
     Dates: start: 20130110, end: 20130930
  12. APURIN SANDOZ 100 MG [Suspect]
     Dosage: 100 MILLIGRAM DAILY;
     Route: 048
     Dates: start: 20111102
  13. ZOPINOX 7.5MG [Suspect]
     Dosage: 7.5 MILLIGRAM DAILY;
     Route: 048
     Dates: start: 20130110
  14. BRICANYL [Suspect]
     Route: 055
     Dates: start: 20070814
  15. FLIXOTIDE EVOHALER [Suspect]
     Dosage: 500 MICROGRAM DAILY;
     Route: 055
     Dates: start: 20070309
  16. OFTAGEL [Suspect]
     Dosage: 4 GTT DAILY; 2.5 MG/G 1 GTT 1-4 TIMES A DAY
     Route: 047
  17. NEULASTA [Concomitant]
     Indication: BONE MARROW FAILURE
     Dosage: ONE DOSE
     Route: 058
     Dates: start: 20131004
  18. MYCOSTATIN 100000IU/ML [Concomitant]
     Dates: start: 20130911
  19. CALCICHEW [Concomitant]
     Dosage: 2 TABLET DAILY; 500MG CALCIUM /10 MICROGRAM VITAMIN D
     Route: 048
     Dates: start: 20120821
  20. KALEORID 1G [Concomitant]
     Dosage: 2000 MILLIGRAM DAILY;
     Route: 048
     Dates: start: 20130506
  21. FOLVITE 1 MG [Concomitant]
     Dosage: 1 MILLIGRAM DAILY;
     Route: 048
     Dates: start: 20130110, end: 20130930
  22. DINIT 1.25 MG/DOS [Concomitant]
     Dosage: 1.25 DOS
     Route: 048
     Dates: start: 20070306
  23. ISANGINA 25MG [Concomitant]
     Dosage: 25 MILLIGRAM DAILY;
     Route: 048
     Dates: start: 20070403
  24. PREDNISOLON [Concomitant]
     Dosage: 5 MILLIGRAM DAILY;
     Route: 048
     Dates: start: 20130506
  25. PARA-TABS 500 MG [Concomitant]
     Dosage: 1500 MILLIGRAM DAILY;
     Route: 048
     Dates: start: 20070814
  26. CEFTRIAXONE/TOBRAMYCIN [Concomitant]
     Dates: start: 20131004
  27. ZARZIO [Concomitant]
     Indication: BONE MARROW FAILURE
     Dosage: 1 DOSE
     Dates: start: 20131004
  28. NEULASTA [Concomitant]

REACTIONS (5)
  - Bone marrow failure [Fatal]
  - Petechiae [Unknown]
  - Oral pain [Unknown]
  - Tongue haemorrhage [Unknown]
  - Fatigue [Unknown]
